FAERS Safety Report 7680119-2 (Version None)
Quarter: 2011Q3

REPORT INFORMATION
  Report Type: 
  Country: None (occurrence: None)
  Receive Date: 20110812
  Receipt Date: 20110802
  Transmission Date: 20111222
  Serious: Yes (Hospitalization, Other)
  Sender: FDA-Public Use
  Company Number: US-ROCHE-782409

PATIENT
  Sex: Male
  Weight: 91.1 kg

DRUGS (19)
  1. OXALIPLATIN [Suspect]
     Indication: OESOPHAGEAL CANCER METASTATIC
     Route: 065
     Dates: start: 20110503, end: 20110719
  2. LOVASTATIN [Concomitant]
  3. DIPHENHYDRAMINE HCL [Concomitant]
     Dosage: DRUG: MAALOX/DIPHENHYDRAMINE/LIDOCAINE
  4. POTASSIUM PHOSPHATES [Concomitant]
     Dosage: DRUG: NEUTRAPHOS
  5. CAPECITABINE [Suspect]
     Indication: OESOPHAGEAL CANCER METASTATIC
     Dosage: FREQUENCY 2 WEEKS 1 OFF.
     Route: 065
     Dates: start: 20110503, end: 20110731
  6. BEVACIZUMAB [Suspect]
     Indication: OESOPHAGEAL CANCER METASTATIC
     Route: 065
     Dates: start: 20110503, end: 20110719
  7. VITAMIN B-12 [Concomitant]
  8. TRASTUZUMAB [Suspect]
     Indication: OESOPHAGEAL CANCER METASTATIC
     Route: 065
     Dates: start: 20110426, end: 20110719
  9. ASPIRIN [Concomitant]
  10. METOPROLOL TARTRATE [Concomitant]
  11. TAMSULOSIN HCL [Concomitant]
  12. M.V.I. [Concomitant]
  13. LOMOTIL [Concomitant]
  14. CYANOCOBALAMIN [Concomitant]
  15. COMPAZINE [Concomitant]
  16. OMEPRAZOLE [Concomitant]
  17. BENTYL [Concomitant]
  18. COLACE [Concomitant]
  19. ASCORBIC ACID [Concomitant]

REACTIONS (4)
  - COLITIS [None]
  - DIARRHOEA [None]
  - DEHYDRATION [None]
  - HYPOKALAEMIA [None]
